FAERS Safety Report 7799905-3 (Version None)
Quarter: 2011Q4

REPORT INFORMATION
  Report Type: 
  Country: None (occurrence: None)
  Receive Date: 20111006
  Receipt Date: 20110927
  Transmission Date: 20120403
  Serious: Yes (Hospitalization, Other)
  Sender: FDA-Public Use
  Company Number: US-ASTRAZENECA-2011SE49297

PATIENT
  Age: 55 Year
  Sex: Female
  Weight: 74.8 kg

DRUGS (23)
  1. SEROQUEL [Interacting]
     Indication: ANXIETY
     Dosage: 1/2 TO 1 TABLET (100 MG) EVERY 8 HOURS AS NEEDED
     Route: 048
  2. KLONOPIN [Interacting]
     Indication: ANXIETY
     Dosage: 1 TABLET (0.5 MG) AS NEEDED NO MORE THAN 1 DAILY
  3. ULTRAM [Concomitant]
     Indication: BACK PAIN
  4. HYDROCODONE BITARTRATE [Interacting]
     Indication: PAIN
     Dosage: 10/500, 2 QID, PRN
     Route: 065
  5. LOPRESSOR [Concomitant]
     Indication: HYPERTENSION
     Route: 048
  6. PHENTERMINE [Concomitant]
     Indication: WEIGHT LOSS DIET
  7. SEROQUEL [Interacting]
     Route: 048
  8. SEROQUEL [Interacting]
     Route: 048
  9. KLONOPIN [Interacting]
  10. PAXIL [Concomitant]
     Indication: ANTIDEPRESSANT THERAPY
  11. KLONOPIN [Interacting]
     Indication: DEPRESSION
     Dosage: 1 TABLET (0.5 MG) AS NEEDED NO MORE THAN 1 DAILY
  12. KLONOPIN [Interacting]
  13. LOPRESSOR [Concomitant]
     Route: 048
  14. SEROQUEL [Suspect]
     Indication: DEPRESSION
     Dosage: 1/2 TO 1 TABLET (100 MG) EVERY 8 HOURS AS NEEDED
     Route: 048
  15. HYDROCODONE BITARTRATE [Interacting]
     Indication: INTERVERTEBRAL DISC DISORDER
     Dosage: 10/500, 2 QID, PRN
     Route: 065
  16. KLONOPIN [Interacting]
  17. SEROQUEL [Interacting]
     Dosage: 1 (100 MG) TO 2 TABLETS DAILY AT BEDTIME
     Route: 048
  18. PRILOSEC [Concomitant]
     Indication: GASTRIC DISORDER
     Dosage: DAILY
  19. PRAVASTATIN [Concomitant]
     Indication: HYPERCHOLESTEROLAEMIA
     Dates: start: 20110208
  20. SEROQUEL [Interacting]
     Dosage: 1 (100 MG) TO 2 TABLETS DAILY AT BEDTIME
     Route: 048
  21. KLONOPIN [Interacting]
  22. SYNTHROID [Concomitant]
     Indication: THYROID DISORDER
  23. SYNTHROID [Concomitant]
     Route: 048

REACTIONS (19)
  - BLISTER INFECTED [None]
  - ABSCESS LIMB [None]
  - ANXIETY DISORDER [None]
  - DRUG INTERACTION [None]
  - OVERDOSE [None]
  - LOCALISED INFECTION [None]
  - DRUG SCREEN POSITIVE [None]
  - THYROID DISORDER [None]
  - HYPOTHYROIDISM [None]
  - STAPHYLOCOCCAL INFECTION [None]
  - DEPRESSION [None]
  - ACUTE SINUSITIS [None]
  - DRUG LEVEL INCREASED [None]
  - BACK PAIN [None]
  - DELIRIUM [None]
  - BLOOD CHOLESTEROL ABNORMAL [None]
  - DRUG INEFFECTIVE [None]
  - HYPERTENSION [None]
  - BLOOD PRESSURE ABNORMAL [None]
